FAERS Safety Report 21657510 (Version 1)
Quarter: 2022Q4

REPORT INFORMATION
  Report Type: Spontaneous
  Country: PT (occurrence: PT)
  Receive Date: 20221129
  Receipt Date: 20221129
  Transmission Date: 20230112
  Serious: Yes (Hospitalization, Other)
  Sender: FDA-Public Use
  Company Number: PT-EMA-DD-20191224-kumarvn_p-101844

PATIENT
  Age: 20 Year
  Sex: Male

DRUGS (5)
  1. ASPIRIN [Suspect]
     Active Substance: ASPIRIN
     Indication: Product used for unknown indication
     Dosage: UNK
     Route: 065
  2. FORMOTEROL [Suspect]
     Active Substance: FORMOTEROL
     Indication: Asthma
     Dosage: 4.5 UG SOS
     Route: 065
  3. IBUPROFEN [Suspect]
     Active Substance: IBUPROFEN
     Indication: Asthma
     Dosage: UNK
     Route: 048
  4. BUDESONIDE [Suspect]
     Active Substance: BUDESONIDE
     Indication: Asthma
     Dosage: 160 UG SOS
     Route: 065
  5. ADRENALIN [Suspect]
     Active Substance: EPINEPHRINE
     Indication: Anaphylactic reaction
     Dosage: UNK
     Route: 030

REACTIONS (25)
  - Anaphylactic reaction [Recovered/Resolved]
  - Atrial fibrillation [Recovered/Resolved]
  - Sinusitis [Unknown]
  - Drug hypersensitivity [Recovered/Resolved]
  - Taste disorder [Not Recovered/Not Resolved]
  - Drug intolerance [Unknown]
  - Nasal obstruction [Recovering/Resolving]
  - Condition aggravated [Unknown]
  - Nasal polyps [Unknown]
  - Bronchial disorder [Recovering/Resolving]
  - Asthma [Unknown]
  - Anosmia [Not Recovered/Not Resolved]
  - Nasal turbinate hypertrophy [Unknown]
  - Diarrhoea [Recovered/Resolved]
  - Lip oedema [Recovered/Resolved]
  - Periorbital oedema [Recovered/Resolved]
  - Oxygen saturation decreased [Recovered/Resolved]
  - Cough [Recovered/Resolved]
  - Hypersensitivity [Recovered/Resolved]
  - Oedema peripheral [Recovered/Resolved]
  - Dyspnoea [Recovered/Resolved]
  - Erythema [Recovered/Resolved]
  - Eosinophilia [Unknown]
  - Off label use [Unknown]
  - NSAID exacerbated respiratory disease [Unknown]
